FAERS Safety Report 12278296 (Version 4)
Quarter: 2016Q2

REPORT INFORMATION
  Report Type: Spontaneous
  Country: JP (occurrence: JP)
  Receive Date: 20160418
  Receipt Date: 20160623
  Transmission Date: 20160815
  Serious: Yes (Disabling)
  Sender: FDA-Public Use
  Company Number: JP-AMGEN-JPNSP2016047454

PATIENT
  Age: 75 Year
  Sex: Female
  Weight: 41 kg

DRUGS (13)
  1. RANMARK [Suspect]
     Active Substance: DENOSUMAB
     Indication: METASTASES TO BONE
     Dosage: 120 MG, UNK
     Route: 058
     Dates: start: 20150319, end: 20151224
  2. HALAVEN [Concomitant]
     Active Substance: ERIBULIN MESYLATE
     Indication: BREAST CANCER
     Dosage: 2 MG, QD
     Route: 041
     Dates: start: 20121025
  3. AFEMA [Concomitant]
     Indication: BREAST CANCER
     Dosage: UNK, QD
     Route: 048
  4. HERCEPTIN [Concomitant]
     Active Substance: TRASTUZUMAB
     Indication: BREAST CANCER
     Dosage: 210 MG, QD
     Route: 041
     Dates: start: 20080717
  5. GEMZAR [Concomitant]
     Active Substance: GEMCITABINE HYDROCHLORIDE
     Indication: BREAST CANCER
     Dosage: 2100 MG, QD
     Route: 041
     Dates: start: 20100316
  6. ABRAXANE [Concomitant]
     Active Substance: PACLITAXEL
     Indication: BREAST CANCER
     Dosage: 420 MG, QD
     Route: 041
     Dates: start: 20110628
  7. ZOMETA [Suspect]
     Active Substance: ZOLEDRONIC ACID
     Indication: METASTASES TO BONE
     Dosage: 3 MG, QD
     Route: 041
     Dates: start: 20100330
  8. DOCETAXEL. [Concomitant]
     Active Substance: DOCETAXEL
     Indication: BREAST CANCER
     Dosage: UNK, QD
     Route: 041
     Dates: start: 2002
  9. KADCYLA [Concomitant]
     Active Substance: ADO-TRASTUZUMAB EMTANSINE
     Indication: BREAST CANCER
     Dosage: 180 MG, QD
     Route: 041
     Dates: start: 20140805
  10. UFT [Concomitant]
     Active Substance: TEGAFUR\URACIL
     Indication: BREAST CANCER
     Dosage: UNK, QD
     Route: 048
     Dates: start: 2002, end: 2003
  11. XELODA [Concomitant]
     Active Substance: CAPECITABINE
     Indication: BREAST CANCER
     Dosage: 1800 MG, QD
     Route: 048
     Dates: start: 20130718
  12. ENDOXAN [Concomitant]
     Active Substance: CYCLOPHOSPHAMIDE
     Indication: BREAST CANCER
     Dosage: 100 MG, QD
     Route: 048
     Dates: start: 20130718
  13. PERJETA [Concomitant]
     Active Substance: PERTUZUMAB
     Indication: BREAST CANCER
     Dosage: UNK, QD
     Route: 041
     Dates: start: 20140508

REACTIONS (2)
  - Osteonecrosis of jaw [Not Recovered/Not Resolved]
  - Tooth extraction [Not Recovered/Not Resolved]

NARRATIVE: CASE EVENT DATE: 20160218
